FAERS Safety Report 8130441-0 (Version None)
Quarter: 2012Q1

REPORT INFORMATION
  Report Type: 
  Country: None (occurrence: None)
  Receive Date: 20120210
  Receipt Date: 20120206
  Transmission Date: 20120608
  Serious: Yes (Other)
  Sender: FDA-Public Use
  Company Number: IT-MERCK-1202ITA00009

PATIENT
  Age: 80 Year
  Sex: Male

DRUGS (8)
  1. COZAAR [Suspect]
     Route: 048
     Dates: end: 20111105
  2. ATENOLOL [Suspect]
     Route: 048
     Dates: end: 20111105
  3. ATENOLOL [Suspect]
     Indication: HYPERTENSION
     Route: 048
     Dates: start: 20111106, end: 20111106
  4. ATENOLOL AND CHLORTHALIDONE [Suspect]
     Route: 048
     Dates: end: 20111105
  5. COZAAR [Suspect]
     Indication: HYPERTENSION
     Route: 048
     Dates: start: 20111106, end: 20111106
  6. ATENOLOL [Suspect]
     Indication: HYPERTENSION
     Route: 048
     Dates: start: 20111106, end: 20111106
  7. CLOPIDOGREL BISULFATE [Suspect]
     Route: 048
     Dates: start: 20111106, end: 20111106
  8. CLOPIDOGREL BISULFATE [Suspect]
     Route: 048
     Dates: end: 20111105

REACTIONS (2)
  - HYPERTENSION [None]
  - DRUG INEFFECTIVE [None]
